FAERS Safety Report 25758842 (Version 1)
Quarter: 2025Q3

REPORT INFORMATION
  Report Type: Spontaneous
  Country: EU (occurrence: EU)
  Receive Date: 20250904
  Receipt Date: 20250904
  Transmission Date: 20251021
  Serious: Yes (Hospitalization)
  Sender: GALDERMA
  Company Number: EU-GALDERMA-DE2025016184

PATIENT

DRUGS (1)
  1. NEMLUVIO [Suspect]
     Active Substance: NEMOLIZUMAB-ILTO
     Indication: Dermatitis atopic
     Route: 058
     Dates: start: 20250814, end: 20250814

REACTIONS (4)
  - Rash [Recovering/Resolving]
  - Pruritus [Recovering/Resolving]
  - General physical health deterioration [Recovering/Resolving]
  - Urticaria [Recovering/Resolving]

NARRATIVE: CASE EVENT DATE: 20250815
